FAERS Safety Report 15002311 (Version 1)
Quarter: 2018Q2

REPORT INFORMATION
  Report Type: Spontaneous
  Country: US (occurrence: US)
  Receive Date: 20180612
  Receipt Date: 20180612
  Transmission Date: 20180711
  Serious: No
  Sender: FDA-Public Use
  Company Number: US-ADAPT PHARMA INC-2018ADP00024

PATIENT
  Age: 67 Year
  Sex: Female

DRUGS (1)
  1. NARCAN [Suspect]
     Active Substance: NALOXONE HYDROCHLORIDE
     Indication: OVERDOSE
     Dosage: NOT APPLICABLE

REACTIONS (1)
  - Intercepted drug prescribing error [Recovered/Resolved]

NARRATIVE: CASE EVENT DATE: 20180330
